FAERS Safety Report 8905855 (Version 2)
Quarter: 2012Q4

REPORT INFORMATION
  Report Type: Report from Study
  Country: US (occurrence: US)
  Receive Date: 20121109
  Receipt Date: 20121115
  Transmission Date: 20130627
  Serious: Yes (Other)
  Sender: FDA-Public Use
  Company Number: US-ABBOTT-12P-163-1004427-00

PATIENT
  Age: 51 Year
  Sex: Female
  Weight: 50.85 kg

DRUGS (5)
  1. PROMETRIUM [Suspect]
     Indication: PRODUCT USED FOR UNKNOWN INDICATION
  2. HUMIRA [Suspect]
     Indication: ARTHRITIS ENTEROPATHIC
  3. HUMIRA [Suspect]
     Indication: CROHN^S DISEASE
  4. EVAMIST [Suspect]
     Indication: PRODUCT USED FOR UNKNOWN INDICATION
  5. PREMARIN [Suspect]
     Indication: PRODUCT USED FOR UNKNOWN INDICATION

REACTIONS (2)
  - Intraductal proliferative breast lesion [Not Recovered/Not Resolved]
  - Off label use [Unknown]
